FAERS Safety Report 9964085 (Version 1)
Quarter: 2014Q1

REPORT INFORMATION
  Report Type: Spontaneous
  Country: US (occurrence: US)
  Receive Date: 20140305
  Receipt Date: 20140305
  Transmission Date: 20141002
  Serious: No
  Sender: FDA-Public Use
  Company Number: US-BAYER-2014-029267

PATIENT
  Sex: Female
  Weight: 68 kg

DRUGS (11)
  1. BAYER GENUINE ASPIRIN ORIGINAL STRENGTH [Suspect]
     Dosage: UNK
     Route: 048
  2. BAYER ASPIRIN REGIMEN ADULT LOW STRENGTH [Suspect]
     Dosage: 1 DF, UNK
     Route: 048
  3. ALEVE CAPLET [Suspect]
     Dosage: 2 DF, PRN
     Route: 048
  4. LANSOPRAZOLE [Concomitant]
  5. SYNTHROID [Concomitant]
  6. VITAMIN C [Concomitant]
  7. LOVAZA [Concomitant]
  8. CENTRUM SILVER [Concomitant]
  9. ECOTRIN [Concomitant]
  10. POTASSIUM [Concomitant]
  11. CITRACAL [Concomitant]

REACTIONS (4)
  - Dyspepsia [Recovered/Resolved]
  - Intentional drug misuse [None]
  - Expired drug administered [None]
  - Therapeutic response unexpected [Recovered/Resolved]
